FAERS Safety Report 21832605 (Version 1)
Quarter: 2023Q1

REPORT INFORMATION
  Report Type: Spontaneous
  Country: US (occurrence: US)
  Receive Date: 20230106
  Receipt Date: 20230106
  Transmission Date: 20230418
  Serious: No
  Sender: FDA-Public Use
  Company Number: US-ALLERGAN-2235558US

PATIENT
  Age: 55 Year
  Sex: Female

DRUGS (2)
  1. QULIPTA [Suspect]
     Active Substance: ATOGEPANT
     Indication: Product used for unknown indication
     Dosage: 30 MG, QD
     Route: 048
     Dates: start: 20221207
  2. QULIPTA [Suspect]
     Active Substance: ATOGEPANT
     Dosage: 60 MG, QD
     Route: 048
     Dates: start: 20221207

REACTIONS (6)
  - Therapy interrupted [Unknown]
  - Craniocerebral injury [Unknown]
  - Eye disorder [Unknown]
  - Drug intolerance [Recovering/Resolving]
  - Migraine [Unknown]
  - Nausea [Unknown]

NARRATIVE: CASE EVENT DATE: 20221201
